FAERS Safety Report 17645921 (Version 7)
Quarter: 2021Q2

REPORT INFORMATION
  Report Type: Spontaneous
  Country: JP (occurrence: JP)
  Receive Date: 20200408
  Receipt Date: 20210521
  Transmission Date: 20210716
  Serious: Yes (Other)
  Sender: FDA-Public Use
  Company Number: JP-AMGEN-JPNSP2020056607

PATIENT
  Age: 50 Year
  Sex: Male
  Weight: 61 kg

DRUGS (40)
  1. CALONAL [Concomitant]
     Active Substance: ACETAMINOPHEN
     Indication: UPPER RESPIRATORY TRACT INFLAMMATION
     Dosage: UNK
     Route: 065
  2. EPOGIN [Concomitant]
     Active Substance: ERYTHROPOIETIN
     Dosage: 4500 IU, QW
     Route: 065
     Dates: start: 20190418, end: 20190704
  3. EPOGIN [Concomitant]
     Active Substance: ERYTHROPOIETIN
     Dosage: 1500 IU, QW
     Route: 065
     Dates: start: 20190813, end: 20191005
  4. FOSRENOL [Concomitant]
     Active Substance: LANTHANUM CARBONATE
     Dosage: 1500 MG, EVERYDAY
     Route: 048
     Dates: start: 20200618
  5. OXAROL [Concomitant]
     Active Substance: MAXACALCITOL
     Dosage: 10 UG
     Route: 065
     Dates: end: 20181122
  6. OXAROL [Concomitant]
     Active Substance: MAXACALCITOL
     Dosage: 7.5 UG, Q56H
     Route: 065
     Dates: start: 20181124, end: 20190110
  7. OXAROL [Concomitant]
     Active Substance: MAXACALCITOL
     Dosage: 5 UG, Q56H
     Route: 065
     Dates: start: 20190112, end: 20190221
  8. OXAROL [Concomitant]
     Active Substance: MAXACALCITOL
     Dosage: 2.5 UG, QW
     Route: 065
     Dates: start: 20190223, end: 20190307
  9. OXAROL [Concomitant]
     Active Substance: MAXACALCITOL
     Dosage: 5 UG, Q84H
     Route: 065
     Dates: start: 20190420, end: 20190509
  10. OXAROL [Concomitant]
     Active Substance: MAXACALCITOL
     Dosage: 5 UG, Q56H
     Route: 065
     Dates: start: 20190511, end: 20190725
  11. EPOGIN [Concomitant]
     Active Substance: ERYTHROPOIETIN
     Dosage: 9000 IU, QW
     Route: 065
     Dates: end: 20181220
  12. PARSABIV [Suspect]
     Active Substance: ETELCALCETIDE HYDROCHLORIDE
     Dosage: 5 MG, QW
     Route: 010
     Dates: start: 20190511, end: 20190606
  13. OXAROL [Concomitant]
     Active Substance: MAXACALCITOL
     Dosage: 2.5 UG, QW
     Route: 065
     Dates: start: 20190420, end: 20190509
  14. OXAROL [Concomitant]
     Active Substance: MAXACALCITOL
     Dosage: 5 UG, QW
     Route: 065
     Dates: start: 20190309, end: 20190418
  15. EPOGIN [Concomitant]
     Active Substance: ERYTHROPOIETIN
     Dosage: 2250 IU, QW
     Route: 065
     Dates: start: 20190112, end: 20190207
  16. EPOGIN [Concomitant]
     Active Substance: ERYTHROPOIETIN
     Dosage: 6000 IU, QW
     Route: 065
     Dates: start: 20200627
  17. MAXACALCITOL [Concomitant]
     Active Substance: MAXACALCITOL
     Dosage: 5 UG, QW
     Route: 042
     Dates: start: 20190919, end: 20200507
  18. FESIN [SACCHARATED IRON OXIDE] [Concomitant]
     Active Substance: IRON SUCROSE
     Dosage: 40 MILLIGRAM, QWK
     Route: 065
     Dates: end: 20190118
  19. FESIN [SACCHARATED IRON OXIDE] [Concomitant]
     Active Substance: IRON SUCROSE
     Dosage: 40 MILLIGRAM, QWK
     Route: 065
     Dates: start: 20190511, end: 20190713
  20. OXAROL [Concomitant]
     Active Substance: MAXACALCITOL
     Dosage: 2.5 UG, Q84H
     Route: 065
     Dates: start: 20190309, end: 20190418
  21. OXAROL [Concomitant]
     Active Substance: MAXACALCITOL
     Dosage: 2.5 UG, Q84H
     Route: 065
     Dates: start: 20190727, end: 20190903
  22. EPOGIN [Concomitant]
     Active Substance: ERYTHROPOIETIN
     Dosage: 2250 IU, QW
     Route: 065
     Dates: start: 20190706, end: 20190810
  23. PARSABIV [Suspect]
     Active Substance: ETELCALCETIDE HYDROCHLORIDE
     Dosage: 2.5 MG, Q84H
     Route: 010
     Dates: start: 20190608
  24. BAYASPIRIN [Suspect]
     Active Substance: ASPIRIN
     Indication: PROPHYLAXIS
     Dosage: UNK
     Route: 048
  25. EPOGIN [Concomitant]
     Active Substance: ERYTHROPOIETIN
     Dosage: 3000 IU, QW
     Route: 065
     Dates: start: 20190209, end: 20190411
  26. EPOGIN [Concomitant]
     Active Substance: ERYTHROPOIETIN
     Dosage: 4500 IU, QW
     Route: 065
     Dates: start: 20191019, end: 20200625
  27. FESIN [SACCHARATED IRON OXIDE] [Concomitant]
     Active Substance: IRON SUCROSE
     Dosage: 40 MILLIGRAM, QWK
     Route: 065
     Dates: start: 20200613, end: 20200815
  28. MAXACALCITOL [Concomitant]
     Active Substance: MAXACALCITOL
     Dosage: 2.5 UG, Q84H
     Route: 042
     Dates: start: 20190907, end: 20200509
  29. MAXACALCITOL [Concomitant]
     Active Substance: MAXACALCITOL
     Dosage: 2.5 UG, Q56H
     Route: 042
     Dates: start: 20200512, end: 20210206
  30. OXAROL [Concomitant]
     Active Substance: MAXACALCITOL
     Dosage: 5 UG, Q84H
     Route: 065
     Dates: start: 20190223, end: 20190307
  31. EPOGIN [Concomitant]
     Active Substance: ERYTHROPOIETIN
     Dosage: 2250 IU, QW
     Route: 065
     Dates: start: 20191007, end: 20191017
  32. FOSRENOL [Concomitant]
     Active Substance: LANTHANUM CARBONATE
     Dosage: 750 MG, EVERYDAY
     Route: 048
     Dates: start: 20190322, end: 20190802
  33. MEYLON [Concomitant]
     Active Substance: SODIUM BICARBONATE
     Indication: MUSCLE TWITCHING
     Dosage: UNK
     Route: 042
  34. MAXACALCITOL [Concomitant]
     Active Substance: MAXACALCITOL
     Dosage: 2.5 UG, Q84H
     Route: 042
     Dates: start: 20210209
  35. PARSABIV [Suspect]
     Active Substance: ETELCALCETIDE HYDROCHLORIDE
     Indication: HYPERPARATHYROIDISM SECONDARY
     Dosage: 5 MG, Q56H
     Route: 010
     Dates: start: 20190411, end: 20190509
  36. PARSABIV [Suspect]
     Active Substance: ETELCALCETIDE HYDROCHLORIDE
     Dosage: 2.5 MG, Q84H
     Route: 010
     Dates: start: 20190511, end: 20190604
  37. OXAROL [Concomitant]
     Active Substance: MAXACALCITOL
     Dosage: 5 UG, QW
     Route: 065
     Dates: start: 20190801, end: 20190912
  38. EPOGIN [Concomitant]
     Active Substance: ERYTHROPOIETIN
     Dosage: 4500 IU, QW
     Route: 065
     Dates: start: 20181222, end: 20190110
  39. FOSRENOL [Concomitant]
     Active Substance: LANTHANUM CARBONATE
     Dosage: 1000 MG, EVERYDAY
     Route: 048
     Dates: start: 20190928, end: 20200617
  40. SHAKUYAKUKANZOTO [Concomitant]
     Active Substance: HERBALS
     Indication: MUSCLE TWITCHING
     Dosage: UNK
     Route: 048

REACTIONS (8)
  - Shunt occlusion [Recovered/Resolved]
  - Enterocolitis [Not Recovered/Not Resolved]
  - Shunt occlusion [Recovered/Resolved]
  - Shunt infection [Recovered/Resolved]
  - Drug-induced liver injury [Recovered/Resolved]
  - Shunt occlusion [Recovered/Resolved]
  - Shunt stenosis [Recovered/Resolved]
  - Shunt stenosis [Recovered/Resolved]

NARRATIVE: CASE EVENT DATE: 20191009
